FAERS Safety Report 4922616-6 (Version None)
Quarter: 2006Q1

REPORT INFORMATION
  Report Type: 
  Country: None (occurrence: None)
  Receive Date: 20060224
  Receipt Date: 20060206
  Transmission Date: 20060701
  Serious: Yes (Death)
  Sender: FDA-Public Use
  Company Number: DK-NOVOPROD-250692

PATIENT
  Age: 81 Year
  Sex: Female

DRUGS (5)
  1. NOVOSEVEN [Suspect]
     Indication: ACQUIRED HAEMOPHILIA
     Dosage: 85 UG/KG, UNK
     Dates: start: 20041118
  2. PLATELETS [Concomitant]
  3. FRESH FROZEN PLASMA [Concomitant]
     Dosage: UNK, UNK
     Dates: start: 20031111
  4. FRESH FROZEN PLASMA [Concomitant]
     Dates: start: 20031113
  5. APROTININ [Concomitant]
     Dosage: 59 IU/KG, UNK
     Dates: start: 20031113

REACTIONS (3)
  - DEATH [None]
  - HAEMATURIA [None]
  - NEOPLASM [None]
